FAERS Safety Report 17185324 (Version 1)
Quarter: 2019Q4

REPORT INFORMATION
  Report Type: Spontaneous
  Country: US (occurrence: US)
  Receive Date: 20191220
  Receipt Date: 20191220
  Transmission Date: 20200122
  Serious: No
  Sender: FDA-Public Use
  Company Number: US-THERAPEUTICSMD-2019TMD03710

PATIENT
  Age: 72 Year
  Sex: Female
  Weight: 61.68 kg

DRUGS (5)
  1. IMVEXXY [Suspect]
     Active Substance: ESTRADIOL
     Indication: VULVOVAGINAL DRYNESS
     Dosage: 10 ?G, 1X/DAY
     Route: 067
     Dates: start: 20190923, end: 20190926
  2. LANTUS [Concomitant]
     Active Substance: INSULIN GLARGINE
  3. ELIQUIS [Concomitant]
     Active Substance: APIXABAN
  4. HUMALOG [Concomitant]
     Active Substance: INSULIN LISPRO
  5. TOPROL XL [Concomitant]
     Active Substance: METOPROLOL SUCCINATE

REACTIONS (2)
  - Diabetes mellitus inadequate control [Recovered/Resolved]
  - Off label use [Recovered/Resolved]

NARRATIVE: CASE EVENT DATE: 20190923
